FAERS Safety Report 6673769-3 (Version None)
Quarter: 2010Q2

REPORT INFORMATION
  Report Type: 
  Country: None (occurrence: None)
  Receive Date: 20100408
  Receipt Date: 20100401
  Transmission Date: 20101027
  Serious: Yes (Hospitalization)
  Sender: FDA-Public Use
  Company Number: US-GILEAD-2010-0028266

PATIENT
  Sex: Female
  Weight: 74.91 kg

DRUGS (8)
  1. LETAIRIS [Suspect]
     Indication: PULMONARY ARTERIAL HYPERTENSION
     Route: 048
  2. ROPINIROLE [Concomitant]
  3. LASIX [Concomitant]
  4. AVAPRO [Concomitant]
  5. COREG [Concomitant]
  6. NIFEDIPINE [Concomitant]
  7. SLINDAC [Concomitant]
  8. ASPIRIN [Concomitant]

REACTIONS (1)
  - GASTROINTESTINAL ULCER [None]
